FAERS Safety Report 15396039 (Version 1)
Quarter: 2018Q3

REPORT INFORMATION
  Report Type: Spontaneous
  Country: US (occurrence: US)
  Receive Date: 20180918
  Receipt Date: 20180918
  Transmission Date: 20181010
  Serious: Yes (Other)
  Sender: FDA-Public Use
  Company Number: PHEH2018US038703

PATIENT
  Sex: Male

DRUGS (4)
  1. AMIODARONE HYDROCHLORIDE. [Suspect]
     Active Substance: AMIODARONE HYDROCHLORIDE
     Indication: ATRIAL FIBRILLATION
     Route: 048
     Dates: start: 201609
  2. AMIODARONE HYDROCHLORIDE. [Suspect]
     Active Substance: AMIODARONE HYDROCHLORIDE
     Indication: ATRIAL FIBRILLATION
     Route: 065
  3. AMIODARONE ZYDUS [Suspect]
     Active Substance: AMIODARONE
     Indication: ATRIAL FIBRILLATION
     Route: 065
  4. AMIODARONE TEVA [Suspect]
     Active Substance: AMIODARONE
     Indication: ATRIAL FIBRILLATION
     Route: 065

REACTIONS (12)
  - Pulmonary toxicity [Unknown]
  - Renal disorder [Unknown]
  - Asthenia [Unknown]
  - Pneumonia [Unknown]
  - Dyspnoea [Unknown]
  - Fatigue [Unknown]
  - Syncope [Unknown]
  - Wheezing [Unknown]
  - Product use in unapproved indication [Unknown]
  - Heart rate abnormal [Unknown]
  - Dizziness [Unknown]
  - Chest pain [Unknown]

NARRATIVE: CASE EVENT DATE: 201704
